FAERS Safety Report 9358197 (Version 3)
Quarter: 2013Q3

REPORT INFORMATION
  Report Type: Spontaneous
  Country: US (occurrence: US)
  Receive Date: 20130620
  Receipt Date: 20130819
  Transmission Date: 20140515
  Serious: No
  Sender: FDA-Public Use
  Company Number: US-PFIZER INC-2013183534

PATIENT
  Age: 72 Year
  Sex: Female
  Weight: 67 kg

DRUGS (16)
  1. XELJANZ [Suspect]
     Dosage: 5 MG, UNK
  2. ARAVA [Concomitant]
     Dosage: 20 MG, 1X/DAY
     Route: 048
  3. PREDNISONE [Concomitant]
     Dosage: 2 MG, 1X/DAY (1MG 2 PO QD) (QAM)
     Route: 048
  4. PRILOSEC [Concomitant]
     Dosage: 20 MG, 1X/DAY
  5. ZOCOR [Concomitant]
     Dosage: 20 MG, 1X/DAY
  6. SYNTHROID [Concomitant]
     Dosage: 88 UG, 1X/DAY
  7. ELAVIL [Concomitant]
     Dosage: 50 MG, 1-2 PO QHS
     Route: 048
  8. ATENOLOL [Concomitant]
     Dosage: 25 MG, 1X/DAY
     Route: 048
  9. ATENOLOL [Concomitant]
     Dosage: 25 MG, 2X/DAY
     Route: 048
  10. FOLIC ACID [Concomitant]
     Dosage: 1 MG, 1X/DAY
     Route: 048
  11. LASIX [Concomitant]
     Dosage: 20 MG, AS NEEDED (QAM PRN)
  12. NUVIGIL [Concomitant]
     Dosage: 150 MG, AS NEEDED (QAM)
  13. POTASSIUM [Concomitant]
     Dosage: 20 MEQ, AS NEEDED (QAM)
  14. VITAMIN B12 [Concomitant]
     Dosage: UNK
  15. HAWTHORN [Concomitant]
     Dosage: UNK
  16. COMPAZINE [Concomitant]
     Dosage: UNK

REACTIONS (12)
  - Malaise [Unknown]
  - C-reactive protein increased [Unknown]
  - Red blood cell sedimentation rate increased [Unknown]
  - Low density lipoprotein increased [Unknown]
  - Very low density lipoprotein increased [Unknown]
  - Blood triglycerides increased [Unknown]
  - Blood cholesterol increased [Unknown]
  - Arthralgia [Unknown]
  - Joint range of motion decreased [Unknown]
  - Arthralgia [Unknown]
  - Joint swelling [Unknown]
  - Arthralgia [Unknown]
